FAERS Safety Report 7164466-9 (Version None)
Quarter: 2010Q4

REPORT INFORMATION
  Report Type: 
  Country: None (occurrence: None)
  Receive Date: 20101203
  Receipt Date: 20101118
  Transmission Date: 20110411
  Serious: Yes (Life-Threatening, Hospitalization)
  Sender: FDA-Public Use
  Company Number: JPI-P-013042

PATIENT
  Age: 48 Year
  Sex: Female
  Weight: 58.9676 kg

DRUGS (3)
  1. XYREM [Suspect]
     Indication: INSOMNIA
     Dosage: 7.5 GM (3.75 GM,2 IN 1 D),ORAL, (4 GM,1 TO 2 TIMES NIGHTLY),ORAL
     Route: 048
     Dates: start: 20090604, end: 20100603
  2. XYREM [Suspect]
     Indication: LYME DISEASE
     Dosage: 7.5 GM (3.75 GM,2 IN 1 D),ORAL, (4 GM,1 TO 2 TIMES NIGHTLY),ORAL
     Route: 048
     Dates: start: 20090604, end: 20100603
  3. UNSPECIFIED CONCOMITANT MEDICATIONS [Concomitant]

REACTIONS (4)
  - DEVICE RELATED INFECTION [None]
  - PULMONARY EMBOLISM [None]
  - SEPTIC SHOCK [None]
  - VENTRICULAR TACHYCARDIA [None]
